FAERS Safety Report 13397781 (Version 1)
Quarter: 2017Q2

REPORT INFORMATION
  Report Type: Spontaneous
  Country: FR (occurrence: FR)
  Receive Date: 20170403
  Receipt Date: 20170403
  Transmission Date: 20170830
  Serious: Yes (Death, Other)
  Sender: FDA-Public Use
  Company Number: FR-PFIZER INC-2017136209

PATIENT
  Age: 49 Year
  Sex: Female

DRUGS (1)
  1. AROMASINE [Suspect]
     Active Substance: EXEMESTANE
     Indication: NEOPLASM MALIGNANT

REACTIONS (1)
  - Death [Fatal]
